FAERS Safety Report 13273213 (Version 1)
Quarter: 2017Q1

REPORT INFORMATION
  Report Type: Spontaneous
  Country: US (occurrence: US)
  Receive Date: 20170227
  Receipt Date: 20170227
  Transmission Date: 20170428
  Serious: Yes (Disabling)
  Sender: FDA-Public Use
  Company Number: None

PATIENT
  Age: 53 Year
  Sex: Male
  Weight: 90 kg

DRUGS (3)
  1. IMIQUIMOD. [Suspect]
     Active Substance: IMIQUIMOD
  2. EFUDEX [Suspect]
     Active Substance: FLUOROURACIL
     Indication: BASAL CELL CARCINOMA
     Route: 061
  3. EFUDEX [Suspect]
     Active Substance: FLUOROURACIL
     Indication: HYPERKERATOSIS
     Route: 061

REACTIONS (6)
  - Hypoaesthesia [None]
  - Musculoskeletal stiffness [None]
  - Rash [None]
  - Headache [None]
  - Drug prescribing error [None]
  - Tinnitus [None]

NARRATIVE: CASE EVENT DATE: 20170210
